FAERS Safety Report 10762679 (Version 1)
Quarter: 2015Q1

REPORT INFORMATION
  Report Type: Spontaneous
  Country: CN (occurrence: CN)
  Receive Date: 20150204
  Receipt Date: 20150204
  Transmission Date: 20150721
  Serious: Yes (Other)
  Sender: FDA-Public Use
  Company Number: CN-BAYER-2015-013952

PATIENT
  Age: 70 Year
  Sex: Female

DRUGS (2)
  1. BAYASPIRIN [Suspect]
     Active Substance: ASPIRIN
     Dosage: UNK
  2. AMLODIPINE MESILATE ACTAVIS [Suspect]
     Active Substance: AMLODIPINE MESYLATE

REACTIONS (2)
  - Thrombosis [None]
  - Poor peripheral circulation [None]
